FAERS Safety Report 6260311-4 (Version None)
Quarter: 2009Q3

REPORT INFORMATION
  Report Type: 
  Country: None (occurrence: None)
  Receive Date: 20090708
  Receipt Date: 20090623
  Transmission Date: 20100115
  Serious: Yes (Death)
  Sender: FDA-Public Use
  Company Number: PT-GENENTECH-285656

PATIENT
  Sex: Female

DRUGS (4)
  1. MABTHERA [Suspect]
     Indication: VASCULITIS
     Dosage: UNK
     Route: 065
     Dates: start: 20040101
  2. PREDNISOLONE [Suspect]
     Indication: VASCULITIS
     Dosage: UNK
  3. METHYLPREDNISOLONE [Suspect]
     Indication: VASCULITIS
     Dosage: UNK
  4. CYCLOPHOSPHAMIDE [Suspect]
     Indication: VASCULITIS
     Dosage: UNK

REACTIONS (2)
  - EXTRANODAL MARGINAL ZONE B-CELL LYMPHOMA (MALT TYPE) [None]
  - SEPSIS [None]
